FAERS Safety Report 18138725 (Version 1)
Quarter: 2020Q3

REPORT INFORMATION
  Report Type: Spontaneous
  Country: US (occurrence: US)
  Receive Date: 20200811
  Receipt Date: 20200811
  Transmission Date: 20201103
  Serious: Yes (Hospitalization, Disabling, Other)
  Sender: FDA-Public Use
  Company Number: None

PATIENT
  Age: 66 Year
  Sex: Male
  Weight: 116.4 kg

DRUGS (7)
  1. METFORMIN [Concomitant]
     Active Substance: METFORMIN HYDROCHLORIDE
  2. BUPROPION. [Concomitant]
     Active Substance: BUPROPION
  3. DESCOVY [Concomitant]
     Active Substance: EMTRICITABINE\TENOFOVIR ALAFENAMIDE FUMARATE
  4. JARDIANCE [Suspect]
     Active Substance: EMPAGLIFLOZIN
     Indication: DIABETES MELLITUS
     Route: 048
     Dates: start: 20200314, end: 20200811
  5. LISINOPRIL. [Concomitant]
     Active Substance: LISINOPRIL
  6. ATORVASTATIN [Concomitant]
     Active Substance: ATORVASTATIN
  7. TOUJEO [Concomitant]
     Active Substance: INSULIN GLARGINE

REACTIONS (1)
  - Fournier^s gangrene [None]

NARRATIVE: CASE EVENT DATE: 20200809
